FAERS Safety Report 5771848-6 (Version None)
Quarter: 2008Q2

REPORT INFORMATION
  Report Type: 
  Country: None (occurrence: None)
  Receive Date: 20080613
  Receipt Date: 20080603
  Transmission Date: 20081010
  Serious: Yes (Other)
  Sender: FDA-Public Use
  Company Number: B0360668A

PATIENT
  Age: 51 Year
  Sex: Female

DRUGS (3)
  1. PAROXETINE HCL [Suspect]
     Indication: AGORAPHOBIA
     Dosage: 30MG UNKNOWN
     Route: 065
     Dates: start: 19990702
  2. SERC [Concomitant]
     Dosage: 80MG PER DAY
     Route: 065
  3. CITALOPRAM HYDROBROMIDE [Concomitant]
     Dates: start: 20000626

REACTIONS (25)
  - ABASIA [None]
  - ANXIETY [None]
  - ASTHENIA [None]
  - BACK PAIN [None]
  - BALANCE DISORDER [None]
  - BURNING SENSATION [None]
  - DIZZINESS [None]
  - DYSSTASIA [None]
  - FEELING ABNORMAL [None]
  - FEELING HOT [None]
  - FORMICATION [None]
  - GAIT DISTURBANCE [None]
  - HEADACHE [None]
  - NIGHTMARE [None]
  - PAIN [None]
  - PAIN IN EXTREMITY [None]
  - PANIC ATTACK [None]
  - PARAESTHESIA [None]
  - SLEEP DISORDER [None]
  - STOMACH DISCOMFORT [None]
  - SYNCOPE [None]
  - TINNITUS [None]
  - TREMOR [None]
  - VERTIGO [None]
  - WITHDRAWAL SYNDROME [None]
